FAERS Safety Report 8550810-4 (Version None)
Quarter: 2012Q3

REPORT INFORMATION
  Report Type: 
  Country: None (occurrence: None)
  Receive Date: 20120730
  Receipt Date: 20120717
  Transmission Date: 20120928
  Serious: No
  Sender: FDA-Public Use
  Company Number: US-JNJFOC-20120515544

PATIENT
  Sex: Male

DRUGS (10)
  1. LORAZEPAM [Concomitant]
     Route: 065
  2. WELLBUTRIN [Concomitant]
     Route: 048
  3. ATENOLOL [Concomitant]
     Route: 065
  4. ARIPIPRAZOLE [Concomitant]
     Route: 065
  5. TRIHEXYPHENIDYL HCL [Concomitant]
     Route: 065
  6. INVEGA SUSTENNA [Suspect]
     Indication: SCHIZOAFFECTIVE DISORDER
     Route: 030
     Dates: start: 20110601
  7. TRILEPTAL [Concomitant]
     Route: 048
  8. CLONIDINE [Concomitant]
     Route: 065
  9. MIRTAZAPINE [Concomitant]
     Route: 065
  10. HYDROXYZINE [Concomitant]
     Route: 065

REACTIONS (1)
  - DRUG ADMINISTRATION ERROR [None]
